FAERS Safety Report 7028642-8 (Version None)
Quarter: 2010Q4

REPORT INFORMATION
  Report Type: 
  Country: None (occurrence: None)
  Receive Date: 20101005
  Receipt Date: 20100930
  Transmission Date: 20110411
  Serious: Yes (Death)
  Sender: FDA-Public Use
  Company Number: US-ASTRAZENECA-2010SE46179

PATIENT
  Age: 69 Year
  Sex: Female

DRUGS (6)
  1. SEROQUEL [Suspect]
     Route: 048
  2. ACETAMINOPHEN [Suspect]
  3. OXYCODONE [Suspect]
  4. DULOXETINE [Suspect]
  5. DIPHENHYDRAMINE [Suspect]
  6. BUPROPION [Suspect]

REACTIONS (3)
  - DRUG TOXICITY [None]
  - HAEMORRHAGE [None]
  - LACERATION [None]
